FAERS Safety Report 13798252 (Version 1)
Quarter: 2017Q3

REPORT INFORMATION
  Report Type: Spontaneous
  Country: US (occurrence: US)
  Receive Date: 20170726
  Receipt Date: 20170726
  Transmission Date: 20171127
  Serious: Yes (Hospitalization)
  Sender: FDA-Public Use
  Company Number: None

PATIENT
  Age: 49 Year
  Sex: Male
  Weight: 99.1 kg

DRUGS (1)
  1. NAFCILLIN [Suspect]
     Active Substance: NAFCILLIN\NAFCILLIN SODIUM
     Indication: ARTHRITIS INFECTIVE
     Route: 042
     Dates: start: 20170113, end: 20170127

REACTIONS (3)
  - Diarrhoea [None]
  - Abdominal pain [None]
  - Abdominal distension [None]

NARRATIVE: CASE EVENT DATE: 20170124
